FAERS Safety Report 14193261 (Version 2)
Quarter: 2017Q4

REPORT INFORMATION
  Report Type: Spontaneous
  Country: US (occurrence: US)
  Receive Date: 20171116
  Receipt Date: 20171208
  Transmission Date: 20180321
  Serious: No
  Sender: FDA-Public Use
  Company Number: US-B.I. PHARMACEUTICALS,INC./RIDGEFIELD-2017-BI-060691

PATIENT
  Sex: Female

DRUGS (1)
  1. SPIRIVA [Suspect]
     Active Substance: TIOTROPIUM BROMIDE MONOHYDRATE
     Indication: PRODUCT USED FOR UNKNOWN INDICATION
     Dosage: NR;  FORM STRENGTH: 18 MCG;? ADMINISTRATION CORRECT? NR
     Route: 055
     Dates: start: 2014

REACTIONS (4)
  - Dyspnoea [Unknown]
  - Pain [Unknown]
  - Product physical issue [Unknown]
  - Pulmonary pain [Unknown]
